FAERS Safety Report 12938408 (Version 1)
Quarter: 2016Q4

REPORT INFORMATION
  Report Type: Spontaneous
  Country: US (occurrence: US)
  Receive Date: 20161114
  Receipt Date: 20161114
  Transmission Date: 20170207
  Serious: Yes (Other)
  Sender: FDA-Public Use
  Company Number: None

PATIENT
  Age: 65 Year
  Sex: Female

DRUGS (3)
  1. XIIDRA [Suspect]
     Active Substance: LIFITEGRAST
     Indication: DRY EYE
     Route: 047
     Dates: start: 20160915, end: 20161027
  2. EPINASTINE [Concomitant]
     Active Substance: EPINASTINE
  3. FISH OIL [Concomitant]
     Active Substance: FISH OIL

REACTIONS (5)
  - Instillation site pain [None]
  - Visual acuity reduced [None]
  - Economic problem [None]
  - Eye disorder [None]
  - Lacrimation increased [None]

NARRATIVE: CASE EVENT DATE: 20161020
